FAERS Safety Report 8955555 (Version 1)
Quarter: 2012Q4

REPORT INFORMATION
  Report Type: 
  Country: US (occurrence: US)
  Receive Date: 20121207
  Receipt Date: 20121207
  Transmission Date: 20130627
  Serious: No
  Sender: FDA-Public Use
  Company Number: US-PFIZER INC-2012304927

PATIENT
  Age: 79 Year
  Sex: Female
  Weight: 66.21 kg

DRUGS (3)
  1. CELEBREX [Suspect]
     Indication: PAIN IN HIP
     Dosage: 200 mg, 1x/day
     Route: 048
     Dates: start: 201210, end: 201210
  2. WELCHOL [Suspect]
     Indication: CHOLESTEROL
     Dosage: UNK
  3. CALCIUM [Concomitant]
     Dosage: UNK

REACTIONS (2)
  - Arthralgia [Unknown]
  - Muscle spasms [Unknown]
